FAERS Safety Report 23512198 (Version 2)
Quarter: 2025Q1

REPORT INFORMATION
  Report Type: Spontaneous
  Country: US (occurrence: US)
  Receive Date: 20240212
  Receipt Date: 20250130
  Transmission Date: 20250409
  Serious: Yes (Other)
  Sender: BRISTOL-MYERS SQUIBB COMPANY
  Company Number: US-BRISTOL-MYERS SQUIBB COMPANY-2024-021083

PATIENT
  Age: 80 Year
  Sex: Male

DRUGS (3)
  1. ELIQUIS [Interacting]
     Active Substance: APIXABAN
     Indication: Product used for unknown indication
  2. XTANDI [Interacting]
     Active Substance: ENZALUTAMIDE
     Indication: Prostate cancer
     Route: 048
     Dates: start: 20210531
  3. XTANDI [Interacting]
     Active Substance: ENZALUTAMIDE
     Route: 048
     Dates: start: 202106

REACTIONS (2)
  - Myocardial infarction [Unknown]
  - Drug interaction [Unknown]

NARRATIVE: CASE EVENT DATE: 20210605
